FAERS Safety Report 24292270 (Version 1)
Quarter: 2024Q3

REPORT INFORMATION
  Report Type: Spontaneous
  Country: US (occurrence: None)
  Receive Date: 20240906
  Receipt Date: 20240906
  Transmission Date: 20241016
  Serious: No
  Sender: DOMPE FARMACEUTICI
  Company Number: US-FARMAPROD-202307-2257

PATIENT
  Sex: Female

DRUGS (22)
  1. OXERVATE [Suspect]
     Active Substance: CENEGERMIN-BKBJ
     Indication: Neurotrophic keratopathy
     Route: 047
     Dates: start: 20230726
  2. EZETIMIBE [Concomitant]
     Active Substance: EZETIMIBE
  3. VITAMIN B12 [Concomitant]
     Active Substance: CYANOCOBALAMIN
  4. ISOSORBIDE MONONITRATE [Concomitant]
     Active Substance: ISOSORBIDE MONONITRATE
  5. METOPROLOL SUCCINATE [Concomitant]
     Active Substance: METOPROLOL SUCCINATE
  6. DEXILANT [Concomitant]
     Active Substance: DEXLANSOPRAZOLE
  7. OXYBUTYNIN CHLORIDE [Concomitant]
     Active Substance: OXYBUTYNIN CHLORIDE
  8. IRON [Concomitant]
     Active Substance: IRON
     Dosage: 240(27)MG
  9. OLMESARTAN MEDOXOMIL [Concomitant]
     Active Substance: OLMESARTAN MEDOXOMIL
  10. SYNTHROID [Concomitant]
     Active Substance: LEVOTHYROXINE SODIUM
  11. POTASSIUM CHLORIDE [Concomitant]
     Active Substance: POTASSIUM CHLORIDE
  12. METFORMIN HYDROCHLORIDE [Concomitant]
     Active Substance: METFORMIN HYDROCHLORIDE
  13. CEVIMELINE HYDROCHLORIDE [Concomitant]
     Active Substance: CEVIMELINE HYDROCHLORIDE
  14. HYDROCHLOROTHIAZIDE\OLMESARTAN MEDOXOMIL [Concomitant]
     Active Substance: HYDROCHLOROTHIAZIDE\OLMESARTAN MEDOXOMIL
  15. TYRVAYA [Concomitant]
     Active Substance: VARENICLINE TARTRATE
     Dosage: 0.03/SPRAY
  16. RESTASIS [Concomitant]
     Active Substance: CYCLOSPORINE
  17. GARLIC [Concomitant]
     Active Substance: GARLIC
  18. FISH OIL [Concomitant]
     Active Substance: FISH OIL
     Dosage: 1200-144MG
  19. DIETARY SUPPLEMENT\HERBALS\MILK THISTLE [Concomitant]
     Active Substance: MILK THISTLE
  20. DEXLANSOPRAZOLE [Concomitant]
     Active Substance: DEXLANSOPRAZOLE
  21. MINERALS\OMEGA-3 FATTY ACIDS\VITAMINS [Concomitant]
     Active Substance: MINERALS\OMEGA-3 FATTY ACIDS\VITAMINS
  22. VITAMIN D [Concomitant]
     Active Substance: VITAMIN D NOS

REACTIONS (2)
  - Wrong technique in product usage process [Unknown]
  - Eye pain [Unknown]
